FAERS Safety Report 20607022 (Version 2)
Quarter: 2022Q2

REPORT INFORMATION
  Report Type: Spontaneous
  Country: US (occurrence: US)
  Receive Date: 20220317
  Receipt Date: 20220401
  Transmission Date: 20220721
  Serious: Yes (Hospitalization)
  Sender: FDA-Public Use
  Company Number: US-TEVA-2022-US-2016767

PATIENT
  Age: 4 Year
  Sex: Male

DRUGS (3)
  1. SUCRALFATE [Interacting]
     Active Substance: SUCRALFATE
     Indication: Gastritis
     Route: 065
  2. DESMOPRESSIN [Interacting]
     Active Substance: DESMOPRESSIN
     Indication: Diabetes insipidus
     Route: 065
  3. PANTOPRAZOLE [Concomitant]
     Active Substance: PANTOPRAZOLE
     Indication: Gastritis
     Route: 065

REACTIONS (2)
  - Hypernatraemia [Recovered/Resolved]
  - Drug interaction [Unknown]
